FAERS Safety Report 17865748 (Version 2)
Quarter: 2020Q3

REPORT INFORMATION
  Report Type: Report from Study
  Country: PR (occurrence: PR)
  Receive Date: 20200605
  Receipt Date: 20200715
  Transmission Date: 20201103
  Serious: Yes (Hospitalization, Other)
  Sender: FDA-Public Use
  Company Number: PR-AMGEN-PRI-20200405298

PATIENT
  Age: 47 Year
  Sex: Female
  Weight: 86.6 kg

DRUGS (28)
  1. MELATONIN [CALCIUM;MELATONIN;PYRIDOXINE HYDROCHLORIDE] [Suspect]
     Active Substance: CALCIUM\MELATONIN\PYRIDOXINE HYDROCHLORIDE
     Indication: PSORIASIS
     Dosage: 1 UNK, QD
     Route: 048
     Dates: start: 20191001
  2. CYCLOBENZAPRINE HCL [Concomitant]
     Active Substance: CYCLOBENZAPRINE HYDROCHLORIDE
     Indication: MUSCLE SPASMS
     Dosage: 10 MILLIGRAM, QD
     Route: 048
     Dates: start: 2014
  3. LORATADINE. [Concomitant]
     Active Substance: LORATADINE
     Indication: CHRONIC SINUSITIS
     Dosage: 10 MILLIGRAM
     Route: 048
     Dates: start: 2011
  4. ASPIRIN [ACETYLSALICYLIC ACID] [Concomitant]
     Active Substance: ASPIRIN
     Indication: PRODUCT USED FOR UNKNOWN INDICATION
     Dosage: 81 MILLIGRAM, QD
     Route: 048
     Dates: start: 20190322
  5. PEPCID [Concomitant]
     Active Substance: FAMOTIDINE
     Indication: GASTRITIS
     Dosage: 20 MILLIGRAM, QD
     Route: 048
     Dates: start: 2014
  6. PROZAC [Concomitant]
     Active Substance: FLUOXETINE HYDROCHLORIDE
     Dosage: 20 MILLIGRAM, BID
     Route: 048
     Dates: start: 2018
  7. METFORMIN [Concomitant]
     Active Substance: METFORMIN HYDROCHLORIDE
     Indication: DIABETES MELLITUS
     Dosage: 500 MILLIGRAM, QD
     Route: 048
     Dates: start: 2014
  8. ZANTAC [Concomitant]
     Active Substance: RANITIDINE HYDROCHLORIDE
     Indication: GASTRITIS
     Dosage: 300 MILLIGRAM, QD
     Route: 048
     Dates: start: 2014
  9. FAMOTIDINE. [Concomitant]
     Active Substance: FAMOTIDINE
     Indication: GASTRITIS
     Dosage: 20 MILLIGRAM, QD
     Route: 048
     Dates: start: 2014
  10. CLARITIN [Concomitant]
     Active Substance: LORATADINE
     Indication: CHRONIC SINUSITIS
     Dosage: 10 MILLIGRAM, AS NECESSARY
     Route: 048
     Dates: start: 2011
  11. APREMILAST [Suspect]
     Active Substance: APREMILAST
     Indication: PSORIASIS
     Dosage: 1 UNK, QD
     Route: 048
     Dates: start: 20191001, end: 202003
  12. MOTRIN [Concomitant]
     Active Substance: IBUPROFEN
     Indication: PSORIASIS
     Dosage: 800 MILLIGRAM, AS NECESSARY
     Route: 048
     Dates: start: 1982
  13. TUSNEL [BROMPHENIRAMINE MALEATE;DEXTROMETHORPHAN;GUAIFENESIN] [Concomitant]
     Indication: PRODUCT USED FOR UNKNOWN INDICATION
     Dosage: 30?15?200 MG/5 MLTAKE 10ML, Q6H
     Route: 048
  14. BENTYL [Concomitant]
     Active Substance: DICYCLOMINE HYDROCHLORIDE
     Indication: GASTRITIS
     Dosage: 20 MILLIGRAM, QD
     Route: 048
     Dates: start: 2014
  15. BUTALBITAL;CAFFEINE;PARACETAMOL [Concomitant]
     Active Substance: ACETAMINOPHEN\BUTABARBITAL\CAFFEINE
     Indication: MIGRAINE
     Dosage: 325 MILLIGRAM
     Route: 048
     Dates: start: 2013
  16. LORAZEPAM. [Concomitant]
     Active Substance: LORAZEPAM
     Indication: MAJOR DEPRESSION
     Dosage: 1 MILLIGRAM, QD
     Route: 048
     Dates: start: 2018
  17. FLEXERIL [CEFIXIME] [Concomitant]
     Active Substance: CEFIXIME
     Indication: MUSCLE SPASMS
     Dosage: 10 MILLIGRAM, QD
     Route: 048
     Dates: start: 2014
  18. APREMILAST [Suspect]
     Active Substance: APREMILAST
     Dosage: 1 UNK, QD
     Route: 048
     Dates: start: 202003
  19. DICYCLOVERINE HCL [Concomitant]
     Indication: GASTRITIS
     Dosage: 20 MILLIGRAM, QD
     Route: 048
     Dates: start: 2014
  20. MOTRIN [Concomitant]
     Active Substance: IBUPROFEN
     Indication: PSORIATIC ARTHROPATHY
  21. FIORICET [Concomitant]
     Active Substance: ACETAMINOPHEN\BUTALBITAL\CAFFEINE
     Indication: MIGRAINE
     Dosage: 325 MILLIGRAM, AS NECESSARY
     Route: 048
     Dates: start: 2013
  22. ATIVAN [Concomitant]
     Active Substance: LORAZEPAM
     Indication: MAJOR DEPRESSION
     Dosage: 1 MILLIGRAM, QD
     Route: 048
     Dates: start: 2018
  23. RANITIDINE. [Concomitant]
     Active Substance: RANITIDINE
     Indication: GASTRITIS
     Dosage: 300 MILLIGRAM, QD
     Route: 048
     Dates: start: 2014
  24. FLUOXETINE [Concomitant]
     Active Substance: FLUOXETINE HYDROCHLORIDE
     Indication: ANXIETY
     Dosage: 20 MILLIGRAM, BID
     Route: 048
     Dates: start: 2018
  25. ACETAMINOPHEN. [Concomitant]
     Active Substance: ACETAMINOPHEN
     Indication: MIGRAINE
     Dosage: 325 MILLIGRAM
     Route: 065
     Dates: start: 2013
  26. NEURONTIN [Concomitant]
     Active Substance: GABAPENTIN
     Indication: PSORIASIS
     Dosage: 300 MILLIGRAM, QD
     Route: 048
     Dates: start: 201908
  27. NEURONTIN [Concomitant]
     Active Substance: GABAPENTIN
     Indication: PSORIATIC ARTHROPATHY
  28. CLARITHROMYCIN. [Concomitant]
     Active Substance: CLARITHROMYCIN
     Indication: PRODUCT USED FOR UNKNOWN INDICATION
     Dosage: UNK
     Route: 065
     Dates: start: 2011

REACTIONS (1)
  - Mycoplasma infection [Recovered/Resolved]

NARRATIVE: CASE EVENT DATE: 20200304
